FAERS Safety Report 4909230-3 (Version None)
Quarter: 2006Q1

REPORT INFORMATION
  Report Type: 
  Country: None (occurrence: None)
  Receive Date: 20060210
  Receipt Date: 20060210
  Transmission Date: 20060701
  Serious: No
  Sender: FDA-Public Use
  Company Number: None

PATIENT
  Sex: Female

DRUGS (2)
  1. TAMIFLU [Suspect]
     Indication: INFLUENZA
     Dosage: 75 MG BY MOUTH QD
     Dates: start: 20060127, end: 20060202
  2. TAMIFLU [Suspect]
     Indication: PROPHYLAXIS
     Dosage: 75 MG BY MOUTH QD
     Dates: start: 20060127, end: 20060202

REACTIONS (3)
  - ANGIONEUROTIC OEDEMA [None]
  - SWELLING FACE [None]
  - SWOLLEN TONGUE [None]
